FAERS Safety Report 9125663 (Version 1)
Quarter: 2013Q1

REPORT INFORMATION
  Report Type: Spontaneous
  Country: NZ (occurrence: NZ)
  Receive Date: 20130227
  Receipt Date: 20130227
  Transmission Date: 20140127
  Serious: Yes (Other)
  Sender: FDA-Public Use
  Company Number: PHHY2012NZ104654

PATIENT
  Age: 18 Year
  Sex: Female

DRUGS (2)
  1. QUINAPRIL [Suspect]
  2. NITROFURANTOIN [Suspect]
     Indication: URINARY TRACT INFECTION

REACTIONS (3)
  - Oligohydramnios [Unknown]
  - Beta haemolytic streptococcal infection [Unknown]
  - Exposure during pregnancy [Unknown]
